FAERS Safety Report 4870556-3 (Version None)
Quarter: 2005Q4

REPORT INFORMATION
  Report Type: 
  Country: None (occurrence: None)
  Receive Date: 20051228
  Receipt Date: 20051213
  Transmission Date: 20060501
  Serious: Yes (Other)
  Sender: FDA-Public Use
  Company Number: 2005-BP-21416RO

PATIENT
  Age: 30 Year
  Sex: Female

DRUGS (9)
  1. CYCLOPHOSPHAMIDE [Suspect]
     Indication: GLOMERULONEPHRITIS
     Dosage: SEE TEXT (SEE TEXT), SEE TEXT
  2. WARFARIN (WARFARIN) [Suspect]
  3. CAPTOPRIL [Suspect]
  4. PREDNISONE [Concomitant]
  5. ALBUTEROL (SALBUTAMOL SULFATE) [Concomitant]
  6. TRIAMCINOLONE [Concomitant]
  7. IRBESARTAN [Concomitant]
  8. METOLAZONE [Concomitant]
  9. FUROSEMIDE [Concomitant]

REACTIONS (4)
  - ABORTION SPONTANEOUS [None]
  - CONTRAINDICATION TO MEDICAL TREATMENT [None]
  - DRUG EXPOSURE DURING PREGNANCY [None]
  - PROTEIN URINE PRESENT [None]
